FAERS Safety Report 17410929 (Version 1)
Quarter: 2020Q1

REPORT INFORMATION
  Report Type: Spontaneous
  Country: US (occurrence: US)
  Receive Date: 20200212
  Receipt Date: 20200212
  Transmission Date: 20200409
  Serious: Yes (Hospitalization, Other)
  Sender: FDA-Public Use
  Company Number: US-ELI_LILLY_AND_COMPANY-US202002001855

PATIENT
  Age: 77 Year
  Sex: Female

DRUGS (1)
  1. TRULICITY [Suspect]
     Active Substance: DULAGLUTIDE
     Indication: PRODUCT USED FOR UNKNOWN INDICATION
     Dosage: 0.75 MG, UNKNOWN

REACTIONS (6)
  - Gastric varices haemorrhage [Recovering/Resolving]
  - Hypersomnia [Unknown]
  - Blood pressure decreased [Recovering/Resolving]
  - Liver disorder [Unknown]
  - Varicose vein [Recovering/Resolving]
  - Fatigue [Unknown]
